FAERS Safety Report 23974923 (Version 4)
Quarter: 2024Q3

REPORT INFORMATION
  Report Type: Spontaneous
  Country: JP (occurrence: JP)
  Receive Date: 20240614
  Receipt Date: 20240801
  Transmission Date: 20241016
  Serious: Yes (Hospitalization, Other)
  Sender: AMGEN
  Company Number: JP-KYOWAKIRIN-2024KK013253

PATIENT
  Age: 81 Year
  Sex: Male

DRUGS (2)
  1. DARBEPOETIN ALFA [Suspect]
     Active Substance: DARBEPOETIN ALFA
     Indication: Myelodysplastic syndrome
     Dosage: 180 MICROGRAM, QMO
     Route: 058
     Dates: end: 20240527
  2. ROXADUSTAT [Concomitant]
     Active Substance: ROXADUSTAT
     Indication: Nephrogenic anaemia
     Dosage: 150 MG, 3X/WEEK, THE PATIENT HAD TAKEN EVRENZO AT 150 MG 3 TIMES PER WEEK ON DIALYSIS DAYS
     Route: 048

REACTIONS (2)
  - Subdural haematoma [Recovering/Resolving]
  - Off label use [Unknown]

NARRATIVE: CASE EVENT DATE: 20240519
